FAERS Safety Report 17033092 (Version 2)
Quarter: 2020Q1

REPORT INFORMATION
  Report Type: Spontaneous
  Country: DE (occurrence: DE)
  Receive Date: 20191114
  Receipt Date: 20200127
  Transmission Date: 20200409
  Serious: Yes (Other)
  Sender: FDA-Public Use
  Company Number: DE-BRISTOL-MYERS SQUIBB COMPANY-BMS-2019-107048

PATIENT
  Age: 54 Year
  Sex: Male

DRUGS (1)
  1. NIVOLUMAB [Suspect]
     Active Substance: NIVOLUMAB
     Indication: NON-SMALL CELL LUNG CANCER
     Dosage: 260 MILLIGRAM
     Route: 042
     Dates: start: 201608

REACTIONS (5)
  - Diabetic ketoacidotic hyperglycaemic coma [Unknown]
  - Malignant neoplasm progression [Unknown]
  - Type 1 diabetes mellitus [Unknown]
  - Renal failure [Unknown]
  - Prescribed overdose [Unknown]

NARRATIVE: CASE EVENT DATE: 201609
